FAERS Safety Report 6599006-6 (Version None)
Quarter: 2010Q1

REPORT INFORMATION
  Report Type: 
  Country: None (occurrence: None)
  Receive Date: 20100224
  Receipt Date: 20090615
  Transmission Date: 20100710
  Serious: No
  Sender: FDA-Public Use
  Company Number: US-BRISTOL-MYERS SQUIBB COMPANY-14666986

PATIENT
  Age: 85 Year
  Sex: Male

DRUGS (3)
  1. METFORMIN HCL [Suspect]
     Indication: TYPE 2 DIABETES MELLITUS
     Dosage: STARTED 5-6 YRS AGO;
     Route: 048
  2. ACTOS [Concomitant]
  3. GLYBURIDE [Concomitant]

REACTIONS (1)
  - WEIGHT INCREASED [None]
